FAERS Safety Report 8586030-7 (Version None)
Quarter: 2012Q3

REPORT INFORMATION
  Report Type: 
  Country: None (occurrence: None)
  Receive Date: 20120810
  Receipt Date: 20120802
  Transmission Date: 20120928
  Serious: Yes (Other)
  Sender: FDA-Public Use
  Company Number: BR-ROCHE-1070895

PATIENT
  Sex: Female

DRUGS (2)
  1. XOLAIR [Suspect]
     Route: 065
     Dates: start: 20120514
  2. XOLAIR [Suspect]
     Indication: PRODUCT USED FOR UNKNOWN INDICATION
     Route: 065

REACTIONS (10)
  - ARTHRALGIA [None]
  - PNEUMONIA [None]
  - THROAT IRRITATION [None]
  - COUGH [None]
  - BRONCHITIS [None]
  - PAIN [None]
  - HYPERSENSITIVITY [None]
  - PAIN IN EXTREMITY [None]
  - MALAISE [None]
  - BONE PAIN [None]
